FAERS Safety Report 16935308 (Version 6)
Quarter: 2021Q2

REPORT INFORMATION
  Report Type: Spontaneous
  Country: US (occurrence: US)
  Receive Date: 20191018
  Receipt Date: 20210413
  Transmission Date: 20210716
  Serious: No
  Sender: FDA-Public Use
  Company Number: US-SA-2019SA284031

PATIENT
  Age: 12 Year
  Sex: Female

DRUGS (1)
  1. DUPIXENT [Suspect]
     Active Substance: DUPILUMAB
     Indication: DERMATITIS ATOPIC
     Dosage: 200 MG, QOW
     Route: 058
     Dates: start: 20190611

REACTIONS (8)
  - Ovarian cyst [Unknown]
  - Therapeutic response unexpected [Unknown]
  - Product use issue [Unknown]
  - Injection site swelling [Recovered/Resolved]
  - Infection [Not Recovered/Not Resolved]
  - Dermatitis atopic [Recovered/Resolved]
  - Tinea infection [Not Recovered/Not Resolved]
  - Dermatitis atopic [Not Recovered/Not Resolved]

NARRATIVE: CASE EVENT DATE: 20190611
